FAERS Safety Report 7167012-9 (Version None)
Quarter: 2010Q4

REPORT INFORMATION
  Report Type: 
  Country: None (occurrence: None)
  Receive Date: 20101216
  Receipt Date: 20101213
  Transmission Date: 20110411
  Serious: Yes (Hospitalization)
  Sender: FDA-Public Use
  Company Number: A0899826A

PATIENT
  Age: 52 Year
  Sex: Female

DRUGS (1)
  1. COREG CR [Suspect]
     Dosage: 80MG UNKNOWN
     Route: 065
     Dates: start: 20090101

REACTIONS (1)
  - HOSPITALISATION [None]
